FAERS Safety Report 21568939 (Version 1)
Quarter: 2022Q4

REPORT INFORMATION
  Report Type: Report from Study
  Country: US (occurrence: US)
  Receive Date: 20221108
  Receipt Date: 20221108
  Transmission Date: 20230113
  Serious: Yes (Other)
  Sender: FDA-Public Use
  Company Number: US-ABBVIE-4191367

PATIENT
  Sex: Female

DRUGS (1)
  1. HUMIRA [Suspect]
     Active Substance: ADALIMUMAB
     Indication: Rheumatoid arthritis
     Route: 058
     Dates: end: 20221012

REACTIONS (5)
  - Pulmonary fibrosis [Unknown]
  - Pain [Unknown]
  - Sinusitis [Unknown]
  - Sjogren^s syndrome [Unknown]
  - Bronchitis [Unknown]
